FAERS Safety Report 9146165 (Version 1)
Quarter: 2013Q1

REPORT INFORMATION
  Report Type: Spontaneous
  Country: IT (occurrence: IT)
  Receive Date: 20130307
  Receipt Date: 20130307
  Transmission Date: 20140127
  Serious: Yes (Other)
  Sender: FDA-Public Use
  Company Number: PHHY2013IT022062

PATIENT
  Age: 11 Year
  Sex: Male

DRUGS (1)
  1. RITALIN [Suspect]
     Indication: ATTENTION DEFICIT/HYPERACTIVITY DISORDER
     Dosage: 10 MG, (DAILY)
     Route: 048
     Dates: start: 20121206, end: 20130218

REACTIONS (2)
  - Mood swings [Unknown]
  - Irritability [Unknown]
